FAERS Safety Report 20459514 (Version 1)
Quarter: 2022Q1

REPORT INFORMATION
  Report Type: Report from Study
  Country: US (occurrence: US)
  Receive Date: 20220211
  Receipt Date: 20220211
  Transmission Date: 20220423
  Serious: Yes (Hospitalization)
  Sender: FDA-Public Use
  Company Number: US-JAZZ-2020-US-018037

PATIENT
  Age: 17 Year
  Sex: Male
  Weight: 45.5 kg

DRUGS (8)
  1. ASPARAGINASE ERWINIA CHRYSANTHEMI [Suspect]
     Active Substance: ASPARAGINASE ERWINIA CHRYSANTHEMI
     Indication: T-cell type acute leukaemia
     Dosage: 2.8 MILLILITER, 3X WEEKLY PER 2W COURSE
     Route: 030
     Dates: start: 20201111, end: 20201123
  2. ASPARAGINASE ERWINIA CHRYSANTHEMI [Suspect]
     Active Substance: ASPARAGINASE ERWINIA CHRYSANTHEMI
     Dosage: 2.8 MILLILITER, 3X WEEKLY PER 2W COURSE
     Route: 030
     Dates: start: 20201221, end: 20201228
  3. COTRIMOXAZOLE [Concomitant]
     Active Substance: SULFAMETHOXAZOLE\TRIMETHOPRIM
     Dosage: 120 MILLIGRAM, BID QSAT+TUE
     Route: 048
     Dates: start: 20200907
  4. METHIMAZOLE [Concomitant]
     Active Substance: METHIMAZOLE
     Dosage: 10 MILLIGRAM, BID
     Route: 048
     Dates: start: 20200901
  5. SCOPOLAMINE [Concomitant]
     Active Substance: SCOPOLAMINE
     Dosage: 1 PATCH, Q72H
     Route: 061
     Dates: start: 20200901
  6. ZOFRAN [Concomitant]
     Active Substance: ONDANSETRON HYDROCHLORIDE
     Dosage: 6 MILLIGRAM, PRN
     Dates: start: 20200903
  7. DRONABINOL [Concomitant]
     Active Substance: DRONABINOL
     Dosage: 5 MILLIGRAM, BID
     Route: 048
     Dates: start: 20200918
  8. DIETARY SUPPLEMENT [Concomitant]
     Active Substance: DIETARY SUPPLEMENT
     Dosage: 750 MILLILITER, QD
     Dates: start: 20201111

REACTIONS (1)
  - Febrile neutropenia [Recovered/Resolved]

NARRATIVE: CASE EVENT DATE: 20201229
